FAERS Safety Report 20330720 (Version 2)
Quarter: 2022Q1

REPORT INFORMATION
  Report Type: Spontaneous
  Country: BR (occurrence: BR)
  Receive Date: 20220113
  Receipt Date: 20220120
  Transmission Date: 20220423
  Serious: Yes (Disabling)
  Sender: FDA-Public Use
  Company Number: BR-ABBVIE-22K-020-4232974-00

PATIENT
  Age: 33 Year
  Sex: Female

DRUGS (2)
  1. SKYRIZI [Suspect]
     Active Substance: RISANKIZUMAB-RZAA
     Indication: Product used for unknown indication
     Route: 058
     Dates: start: 2021, end: 2021
  2. SKYRIZI [Suspect]
     Active Substance: RISANKIZUMAB-RZAA
     Route: 058
     Dates: start: 202112

REACTIONS (10)
  - Abdominal pain [Unknown]
  - Application site oedema [Unknown]
  - Application site vesicles [Unknown]
  - Application site wound [Unknown]
  - Application site necrosis [Unknown]
  - Haematoma [Unknown]
  - Pain of skin [Unknown]
  - Infection [Unknown]
  - Lack of application site rotation [Unknown]
  - Pyrexia [Unknown]

NARRATIVE: CASE EVENT DATE: 20211201
